FAERS Safety Report 13884127 (Version 1)
Quarter: 2017Q3

REPORT INFORMATION
  Report Type: Spontaneous
  Country: US (occurrence: US)
  Receive Date: 20170820
  Receipt Date: 20170820
  Transmission Date: 20171127
  Serious: Yes (Disabling)
  Sender: FDA-Public Use
  Company Number: None

PATIENT
  Age: 33 Year
  Sex: Male
  Weight: 110.25 kg

DRUGS (8)
  1. GUANFACINE HCL ER GENERIC [Suspect]
     Active Substance: GUANFACINE HYDROCHLORIDE
     Indication: PARANOIA
     Dosage: ?          QUANTITY:1 ;?
     Route: 048
     Dates: start: 20170817, end: 20170819
  2. ABILIFY [Concomitant]
     Active Substance: ARIPIPRAZOLE
  3. CRESTOR [Concomitant]
     Active Substance: ROSUVASTATIN CALCIUM
  4. GUANFACINE. [Concomitant]
     Active Substance: GUANFACINE
  5. GUANFACINE HCL ER GENERIC [Suspect]
     Active Substance: GUANFACINE HYDROCHLORIDE
     Indication: ATTENTION DEFICIT/HYPERACTIVITY DISORDER
     Dosage: ?          QUANTITY:1 ;?
     Route: 048
     Dates: start: 20170817, end: 20170819
  6. GUANFACINE HCL ER GENERIC [Suspect]
     Active Substance: GUANFACINE HYDROCHLORIDE
     Indication: FEAR
     Dosage: ?          QUANTITY:1 ;?
     Route: 048
     Dates: start: 20170817, end: 20170819
  7. GUANFACINE HCL ER GENERIC [Suspect]
     Active Substance: GUANFACINE HYDROCHLORIDE
     Indication: BLOOD PRESSURE MEASUREMENT
     Dosage: ?          QUANTITY:1 ;?
     Route: 048
     Dates: start: 20170817, end: 20170819
  8. KLONOPIN [Concomitant]
     Active Substance: CLONAZEPAM

REACTIONS (2)
  - Fear [None]
  - Paranoia [None]

NARRATIVE: CASE EVENT DATE: 20170820
